FAERS Safety Report 16519187 (Version 1)
Quarter: 2019Q3

REPORT INFORMATION
  Report Type: Spontaneous
  Country: US (occurrence: US)
  Receive Date: 20190702
  Receipt Date: 20190702
  Transmission Date: 20191004
  Serious: No
  Sender: FDA-Public Use
  Company Number: US-GALDERMA-US18038673

PATIENT
  Age: 39 Year
  Sex: Female

DRUGS (3)
  1. ABILIFY [Concomitant]
     Active Substance: ARIPIPRAZOLE
     Indication: PRODUCT USED FOR UNKNOWN INDICATION
  2. DIFFERIN GEL [Suspect]
     Active Substance: ADAPALENE
     Indication: RASH
     Dosage: 0.1%
     Route: 061
     Dates: start: 201808, end: 201809
  3. ZOLOFT [Concomitant]
     Active Substance: SERTRALINE HYDROCHLORIDE
     Indication: PRODUCT USED FOR UNKNOWN INDICATION

REACTIONS (2)
  - Product use in unapproved indication [Recovered/Resolved]
  - Chemical burn of skin [Recovered/Resolved]

NARRATIVE: CASE EVENT DATE: 201808
